FAERS Safety Report 11790016 (Version 1)
Quarter: 2015Q4

REPORT INFORMATION
  Report Type: Spontaneous
  Country: US (occurrence: None)
  Receive Date: 20151130
  Receipt Date: 20151130
  Transmission Date: 20160305
  Serious: Yes (Hospitalization)
  Sender: FDA-Public Use
  Company Number: None

PATIENT
  Age: 75 Year
  Sex: Female
  Weight: 40 kg

DRUGS (1)
  1. OXYGEN. [Suspect]
     Active Substance: OXYGEN
     Indication: DYSPNOEA
     Dosage: 3 LPM CONTINUOUS NASAL CANNULA
     Route: 045
     Dates: start: 20150422

REACTIONS (2)
  - Wrong technique in product usage process [None]
  - Thermal burn [None]

NARRATIVE: CASE EVENT DATE: 20151124
